FAERS Safety Report 10889611 (Version 4)
Quarter: 2015Q3

REPORT INFORMATION
  Report Type: Spontaneous
  Country: US (occurrence: US)
  Receive Date: 20150305
  Receipt Date: 20150821
  Transmission Date: 20151125
  Serious: Yes (Other)
  Sender: FDA-Public Use
  Company Number: US-GLAXOSMITHKLINE-US2015GSK029069

PATIENT
  Age: 64 Year
  Sex: Female

DRUGS (5)
  1. FLONASE [Suspect]
     Active Substance: FLUTICASONE PROPIONATE
     Indication: CHRONIC OBSTRUCTIVE PULMONARY DISEASE
  2. FLONASE [Suspect]
     Active Substance: FLUTICASONE PROPIONATE
     Indication: ASTHMA
     Dosage: 50 UG, U
     Dates: start: 2008
  3. ADVAIR DISKUS [Suspect]
     Active Substance: FLUTICASONE PROPIONATE\SALMETEROL XINAFOATE
     Dosage: 500/50 MCG
  4. FLONASE [Suspect]
     Active Substance: FLUTICASONE PROPIONATE
     Indication: CHRONIC SINUSITIS
  5. ADVAIR DISKUS [Suspect]
     Active Substance: FLUTICASONE PROPIONATE\SALMETEROL XINAFOATE
     Indication: PRODUCT USED FOR UNKNOWN INDICATION
     Dosage: UNK, U
     Dates: start: 2008

REACTIONS (6)
  - Mental impairment [Unknown]
  - Malaise [Unknown]
  - Ill-defined disorder [Unknown]
  - Product quality issue [Unknown]
  - Brain injury [Unknown]
  - Therapy cessation [Unknown]

NARRATIVE: CASE EVENT DATE: 20150119
